FAERS Safety Report 22762195 (Version 2)
Quarter: 2023Q4

REPORT INFORMATION
  Report Type: Report from Study
  Country: US (occurrence: None)
  Receive Date: 20230728
  Receipt Date: 20231108
  Transmission Date: 20240109
  Serious: Yes (Hospitalization)
  Sender: FDA-Public Use
  Company Number: US-ROCHE-3393995

PATIENT
  Age: 65 Year
  Sex: Female
  Weight: 74.5 kg

DRUGS (4)
  1. ATEZOLIZUMAB [Suspect]
     Active Substance: ATEZOLIZUMAB
     Indication: Adenocarcinoma of colon
     Dosage: MOST RECENT DOSE OF ATEZOLIZUMAB 22/MAR/2023
     Route: 041
     Dates: start: 20230111
  2. FLUOROURACIL [Suspect]
     Active Substance: FLUOROURACIL
     Indication: Adenocarcinoma of colon
     Dosage: MOST RECENT DOSE OF 16/JUN/2023 5-FLUOROURACILM , 400MG/M2 IV (BOLUS) ON DAY 1 FOLLOWED BY 2400MG/M2
     Route: 040
     Dates: start: 20221230
  3. LEUCOVORIN CALCIUM [Suspect]
     Active Substance: LEUCOVORIN CALCIUM
     Indication: Adenocarcinoma of colon
     Dosage: MOST RECENT DOSE OF LEUCOVORIN 14/JUN/2023
     Route: 042
     Dates: start: 20221230
  4. OXALIPLATIN [Suspect]
     Active Substance: OXALIPLATIN
     Indication: Adenocarcinoma of colon
     Dosage: MOST RECENT DOSE OF OXALIPLATIN ON 19/APR/2023
     Route: 042
     Dates: start: 20221230

REACTIONS (1)
  - Pneumatosis intestinalis [Recovering/Resolving]

NARRATIVE: CASE EVENT DATE: 20230629
